FAERS Safety Report 6091337-1 (Version None)
Quarter: 2009Q1

REPORT INFORMATION
  Report Type: 
  Country: None (occurrence: None)
  Receive Date: 20090220
  Receipt Date: 20090220
  Transmission Date: 20090719
  Serious: Yes (Other)
  Sender: FDA-Public Use
  Company Number: None

PATIENT
  Age: 9 Month
  Sex: Male
  Weight: 9.7 kg

DRUGS (2)
  1. SYNAGIS [Suspect]
     Indication: PREMATURE BABY
     Dosage: 15ML/KG MONTHLY IM
     Route: 030
     Dates: start: 20081120
  2. SYNAGIS [Suspect]
     Dosage: 15ML /KG MONTHLY IM
     Route: 030

REACTIONS (2)
  - INJECTION SITE ERYTHEMA [None]
  - INJECTION SITE RASH [None]
